FAERS Safety Report 24737665 (Version 1)
Quarter: 2024Q4

REPORT INFORMATION
  Report Type: Spontaneous
  Country: PT (occurrence: PT)
  Receive Date: 20241216
  Receipt Date: 20241216
  Transmission Date: 20250115
  Serious: Yes (Hospitalization, Other)
  Sender: SANOFI AVENTIS
  Company Number: PT-DialogSolutions-SAAVPROD-PI713344-C1

PATIENT
  Age: 66 Year
  Sex: Male

DRUGS (3)
  1. ZOLPIDEM TARTRATE [Suspect]
     Active Substance: ZOLPIDEM TARTRATE
     Indication: Depressive symptom
     Dosage: 10 MG
  2. AMITRIPTYLINE HYDROCHLORIDE [Suspect]
     Active Substance: AMITRIPTYLINE HYDROCHLORIDE
     Indication: Depressive symptom
     Dosage: 25 MG
  3. BUSPIRONE [Suspect]
     Active Substance: BUSPIRONE HYDROCHLORIDE
     Indication: Depressive symptom
     Dosage: 5 MG

REACTIONS (12)
  - Serotonin syndrome [Recovering/Resolving]
  - Poisoning deliberate [Recovering/Resolving]
  - Hyperthermia [Recovering/Resolving]
  - Hyperlactacidaemia [Recovering/Resolving]
  - Agitation [Recovering/Resolving]
  - Tremor [Recovering/Resolving]
  - Pyrexia [Recovering/Resolving]
  - Mental status changes [Recovering/Resolving]
  - Tachycardia [Recovering/Resolving]
  - Respiratory failure [Recovering/Resolving]
  - Tachypnoea [Recovering/Resolving]
  - Hypoxia [Recovering/Resolving]
